FAERS Safety Report 6873024-2 (Version None)
Quarter: 2010Q3

REPORT INFORMATION
  Report Type: 
  Country: None (occurrence: None)
  Receive Date: 20100723
  Receipt Date: 20081124
  Transmission Date: 20110219
  Serious: Yes (Hospitalization, Other)
  Sender: FDA-Public Use
  Company Number: US-PFIZER INC-2008099829

PATIENT
  Age: 52 Year
  Sex: Female

DRUGS (3)
  1. CHANTIX [Suspect]
     Dates: start: 20080101
  2. EFFEXOR [Concomitant]
  3. VALPROIC ACID [Concomitant]
     Indication: BIPOLAR DISORDER

REACTIONS (1)
  - SUICIDAL IDEATION [None]
